FAERS Safety Report 9152535 (Version 4)
Quarter: 2013Q1

REPORT INFORMATION
  Report Type: Report from Study
  Country: RS (occurrence: RS)
  Receive Date: 20130308
  Receipt Date: 20130327
  Transmission Date: 20140127
  Serious: Yes (Hospitalization)
  Sender: FDA-Public Use
  Company Number: RS-VERTEX PHARMACEUTICALS INC.-2013-003272

PATIENT
  Age: 60 Year
  Sex: Female
  Weight: 69 kg

DRUGS (8)
  1. VX-950 (TELAPREVIR) [Suspect]
     Indication: HEPATITIS C
     Dosage: 375 MG, QD TABLET
     Route: 048
     Dates: start: 20121226
  2. VX-950 (TELAPREVIR) [Suspect]
     Dosage: 375 MG, QD
     Dates: start: 20130304
  3. REBETOL [Suspect]
     Indication: HEPATITIS C
     Dosage: DOSAGE FORM: TABLET
     Route: 048
     Dates: start: 20130123
  4. REBETOL [Suspect]
     Dosage: DOSAGE FORM: TABLET
     Route: 048
     Dates: start: 20121226
  5. REBETOL [Suspect]
     Dosage: DOSAGE FORM: TABLET
     Route: 048
     Dates: start: 20130304
  6. REBETOL [Suspect]
     Dosage: DOSAGE FORM: TABLET
     Route: 048
     Dates: start: 20130223
  7. PEGINTRON [Suspect]
     Indication: HEPATITIS C
     Dosage: DOSAGE FORM: INJECTION
     Route: 058
     Dates: start: 20130313
  8. PEGINTRON [Suspect]
     Dosage: DOSAGE FORM: INJECTION
     Route: 058
     Dates: start: 20121226

REACTIONS (1)
  - Bronchopneumonia [Recovered/Resolved]
